FAERS Safety Report 10467008 (Version 1)
Quarter: 2014Q3

REPORT INFORMATION
  Report Type: Spontaneous
  Country: DK (occurrence: DK)
  Receive Date: 20140922
  Receipt Date: 20140922
  Transmission Date: 20150326
  Serious: Yes (Hospitalization)
  Sender: FDA-Public Use
  Company Number: DK-NOVOPROD-422386

PATIENT
  Age: 49 Year
  Sex: Female
  Weight: 57 kg

DRUGS (2)
  1. ACTIVELLE [Suspect]
     Active Substance: ESTRADIOL\NORETHINDRONE ACETATE
     Indication: OSTEOPOROSIS
     Dosage: 0,5 + 1 MG.
     Route: 048
     Dates: start: 201104, end: 201208
  2. ALENDRONATE SODIUM. [Concomitant]
     Active Substance: ALENDRONATE SODIUM
     Indication: OSTEOPOROSIS
     Dates: start: 201102

REACTIONS (7)
  - Oophorectomy [Recovered/Resolved]
  - Hysterectomy [Recovered/Resolved]
  - Appendicectomy [Recovered/Resolved]
  - Ovarian cyst [Recovered/Resolved]
  - Ovarian cystectomy [Recovered/Resolved]
  - Salpingectomy [Recovered/Resolved]
  - Omentectomy [Recovered/Resolved]

NARRATIVE: CASE EVENT DATE: 20111010
